FAERS Safety Report 4996695-4 (Version None)
Quarter: 2006Q2

REPORT INFORMATION
  Report Type: 
  Country: None (occurrence: None)
  Receive Date: 20060509
  Receipt Date: 20050718
  Transmission Date: 20061013
  Serious: Yes (Life-Threatening, Hospitalization, Disabling)
  Sender: FDA-Public Use
  Company Number: US-MERCK-0507USA02270

PATIENT
  Age: 58 Year
  Sex: Female
  Weight: 109 kg

DRUGS (1)
  1. VIOXX [Suspect]
     Route: 048
     Dates: start: 20000218, end: 20031210

REACTIONS (5)
  - ACUTE MYOCARDIAL INFARCTION [None]
  - AMNESIA [None]
  - ANGINA UNSTABLE [None]
  - CHEST PAIN [None]
  - OVERDOSE [None]
